FAERS Safety Report 4852827-X (Version None)
Quarter: 2005Q4

REPORT INFORMATION
  Report Type: 
  Country: None (occurrence: None)
  Receive Date: 20051212
  Receipt Date: 20051212
  Transmission Date: 20060501
  Serious: Yes (Life-Threatening, Other)
  Sender: FDA-Public Use
  Company Number: None

PATIENT
  Age: 29 Year
  Sex: Female
  Weight: 79.3795 kg

DRUGS (2)
  1. EFFEXOR XR [Suspect]
     Indication: ANXIETY
     Dosage: 2 PILLS  ONCE DAY OR A + PM PO
     Route: 048
     Dates: start: 20021001, end: 20051104
  2. EFFEXOR XR [Suspect]
     Indication: ANXIETY
     Dosage: 1 PILL DAILY AM OR PM  PO
     Route: 048
     Dates: start: 20021001, end: 20051104

REACTIONS (7)
  - COLD SWEAT [None]
  - DEPRESSION [None]
  - DIZZINESS [None]
  - DRUG DOSE OMISSION [None]
  - IMPAIRED DRIVING ABILITY [None]
  - SUICIDAL IDEATION [None]
  - TREMOR [None]
